FAERS Safety Report 7560558-0 (Version None)
Quarter: 2011Q2

REPORT INFORMATION
  Report Type: 
  Country: None (occurrence: None)
  Receive Date: 20110621
  Receipt Date: 20110215
  Transmission Date: 20111010
  Serious: No
  Sender: FDA-Public Use
  Company Number: US-ASTRAZENECA-2011SE08808

PATIENT
  Sex: Female

DRUGS (7)
  1. SERTRALINE [Concomitant]
  2. ENTOCORT EC [Suspect]
     Indication: COLITIS
     Route: 048
     Dates: end: 20110201
  3. FUROSEMIDE [Concomitant]
  4. NEXIUM [Concomitant]
  5. PROPOXYPHENE HYDROCHLORIDE [Concomitant]
  6. TRAMADOL HCL [Concomitant]
  7. ENTOCORT EC [Suspect]
     Indication: CROHN'S DISEASE
     Route: 048
     Dates: end: 20110201

REACTIONS (2)
  - DIARRHOEA [None]
  - DRUG DOSE OMISSION [None]
